FAERS Safety Report 12395256 (Version 1)
Quarter: 2016Q2

REPORT INFORMATION
  Report Type: Spontaneous
  Country: RU (occurrence: RU)
  Receive Date: 20160523
  Receipt Date: 20160523
  Transmission Date: 20160815
  Serious: Yes (Hospitalization, Other)
  Sender: FDA-Public Use
  Company Number: RU-VIIV HEALTHCARE LIMITED-RU2016GSK070407

PATIENT
  Sex: Female

DRUGS (3)
  1. TENOFOVIR DISOPROXIL FUMARATE. [Suspect]
     Active Substance: TENOFOVIR DISOPROXIL FUMARATE
     Indication: PRODUCT USED FOR UNKNOWN INDICATION
     Dosage: UNK
     Dates: start: 201511
  2. LAMIVUDINE. [Suspect]
     Active Substance: LAMIVUDINE
     Indication: HIV INFECTION
     Dosage: UNK
     Dates: start: 201511
  3. NEVIRAPINE. [Suspect]
     Active Substance: NEVIRAPINE
     Indication: HIV INFECTION
     Dosage: UNK
     Dates: start: 201511

REACTIONS (8)
  - Hypersensitivity [Unknown]
  - Alopecia [Not Recovered/Not Resolved]
  - Skin exfoliation [Recovered/Resolved]
  - Weight decreased [Not Recovered/Not Resolved]
  - Skin fissures [Recovered/Resolved]
  - Gynaecological examination abnormal [Not Recovered/Not Resolved]
  - Asphyxia [Unknown]
  - Generalised erythema [Recovered/Resolved]

NARRATIVE: CASE EVENT DATE: 2015
